FAERS Safety Report 23203304 (Version 1)
Quarter: 2023Q4

REPORT INFORMATION
  Report Type: Spontaneous
  Country: IT (occurrence: IT)
  Receive Date: 20231120
  Receipt Date: 20231120
  Transmission Date: 20240109
  Serious: Yes (Hospitalization)
  Sender: FDA-Public Use
  Company Number: IT-ORGANON-O2304ITA001153

PATIENT
  Age: 54 Year
  Sex: Female

DRUGS (8)
  1. CETIRIZINE [Suspect]
     Active Substance: CETIRIZINE HYDROCHLORIDE
     Indication: Asthma
     Dosage: 10 MILLIGRAM, ONCE A DAY
     Route: 065
  2. MONTELUKAST [Suspect]
     Active Substance: MONTELUKAST SODIUM
     Indication: Asthma
     Dosage: UNK
     Route: 048
  3. RANITIDINE [Suspect]
     Active Substance: RANITIDINE
     Indication: Asthma
     Dosage: UNK
     Route: 065
  4. THEOPHYLLINE [Suspect]
     Active Substance: THEOPHYLLINE
     Indication: Asthma
     Dosage: UNK
     Route: 065
  5. TIOTROPIUM [Suspect]
     Active Substance: TIOTROPIUM
     Indication: Asthma
     Dosage: 2.5 MICROGRAM (2.5 MCG TWO INHALATIONS DAILY)
  6. ALBUTEROL [Suspect]
     Active Substance: ALBUTEROL
     Indication: Asthma
     Dosage: 100 MICROGRAM (100 MCG 10 INHALATIONS DAILY)
  7. FLUTICASONE\FORMOTEROL [Suspect]
     Active Substance: FLUTICASONE\FORMOTEROL
     Indication: Asthma
     Dosage: TWO INHALATIONS TWICE DAILY
  8. PREDNISONE [Suspect]
     Active Substance: PREDNISONE
     Indication: Asthma
     Dosage: 25 MILLIGRAM, ONCE A DAY
     Route: 065

REACTIONS (2)
  - Drug intolerance [Unknown]
  - Drug ineffective [Unknown]
